FAERS Safety Report 15195321 (Version 1)
Quarter: 2018Q3

REPORT INFORMATION
  Report Type: Spontaneous
  Country: US (occurrence: US)
  Receive Date: 20180725
  Receipt Date: 20180725
  Transmission Date: 20181010
  Serious: Yes (Other)
  Sender: FDA-Public Use
  Company Number: US-CORDEN PHARMA LATINA S.P.A.-US-2017COR000200

PATIENT

DRUGS (2)
  1. GLEOSTINE [Suspect]
     Active Substance: LOMUSTINE
     Dosage: 160 MG SINGLE
     Route: 048
  2. GLEOSTINE [Suspect]
     Active Substance: LOMUSTINE
     Indication: GLIOBLASTOMA
     Dosage: 60 MG SINGLE
     Route: 048
     Dates: start: 201708

REACTIONS (3)
  - Visual impairment [Unknown]
  - Confusional state [Unknown]
  - Optic atrophy [Unknown]
